FAERS Safety Report 9617214 (Version 3)
Quarter: 2014Q1

REPORT INFORMATION
  Report Type: Report from Study
  Country: US (occurrence: US)
  Receive Date: 20131011
  Receipt Date: 20140211
  Transmission Date: 20141002
  Serious: Yes (Hospitalization, Other)
  Sender: FDA-Public Use
  Company Number: US-CELGENEUS-163-21880-11111021

PATIENT
  Age: 55 Year
  Sex: Male
  Weight: 81.1 kg

DRUGS (32)
  1. REVLIMID [Suspect]
     Indication: PLASMA CELL MYELOMA
     Route: 048
     Dates: start: 20091113, end: 20110125
  2. REVLIMID [Suspect]
     Dosage: 25 MILLIGRAM
     Route: 048
     Dates: start: 20110216, end: 20120208
  3. REVLIMID [Suspect]
     Route: 048
     Dates: start: 20120222, end: 20140121
  4. CARFILZOMIB [Suspect]
     Indication: PLASMA CELL MYELOMA
     Route: 065
     Dates: start: 20110216, end: 20110217
  5. CARFILZOMIB [Suspect]
     Route: 065
     Dates: start: 20110223, end: 20110428
  6. CARFILZOMIB [Suspect]
     Route: 065
     Dates: start: 20110511, end: 20110721
  7. CARFILZOMIB [Suspect]
     Route: 065
     Dates: start: 20110803, end: 20110804
  8. CARFILZOMIB [Suspect]
     Route: 065
     Dates: start: 20110907, end: 20120531
  9. CARFILZOMIB [Suspect]
     Route: 065
     Dates: start: 20120613, end: 20120628
  10. DEXAMETHASONE [Suspect]
     Indication: PLASMA CELL MYELOMA
     Route: 065
     Dates: start: 200207, end: 200211
  11. DEXAMETHASONE [Suspect]
     Route: 065
     Dates: start: 20110216, end: 20140121
  12. HYDROCHLOROTHIAZIDE [Concomitant]
     Indication: HYPERTENSION
     Dosage: 25 MILLIGRAM
     Route: 048
     Dates: start: 20131204
  13. CALCIUM WITH VITAMIN D [Concomitant]
     Indication: SUPPLEMENTATION THERAPY
     Dosage: 1 TABLET
     Route: 048
     Dates: start: 20040812
  14. ACYCLOVIR [Concomitant]
     Indication: ANTIVIRAL PROPHYLAXIS
     Dosage: 800 MILLIGRAM
     Route: 048
     Dates: start: 20110202
  15. ASA [Concomitant]
     Indication: ANTICOAGULANT THERAPY
     Dosage: 325 MILLIGRAM
     Route: 048
     Dates: start: 20110202, end: 20120629
  16. ASA [Concomitant]
     Indication: ANTIPLATELET THERAPY
  17. LIDODERM [Concomitant]
     Indication: NECK PAIN
     Dosage: 1 PATCH
     Route: 062
     Dates: start: 20110315
  18. LIDODERM [Concomitant]
     Indication: BACK PAIN
     Route: 062
  19. LORAZEPAM [Concomitant]
     Indication: PROPHYLAXIS OF NAUSEA AND VOMITING
     Route: 048
     Dates: start: 20110216, end: 20120628
  20. MORPHINE SULFATE [Concomitant]
     Indication: BACK PAIN
     Route: 048
     Dates: start: 20100203, end: 20120905
  21. MS-CONTIN [Concomitant]
     Indication: BACK PAIN
     Dosage: 180 MILLIGRAM
     Route: 048
     Dates: start: 20030630
  22. MULTIVITAMINS [Concomitant]
     Indication: SUPPLEMENTATION THERAPY
     Dosage: 1 TABLET
     Route: 048
     Dates: start: 20040812
  23. ONDANSETRON [Concomitant]
     Indication: PROPHYLAXIS OF NAUSEA AND VOMITING
     Route: 048
     Dates: start: 20110216, end: 20120628
  24. PANTOPRAZOLE [Concomitant]
     Indication: PRODUCT USED FOR UNKNOWN INDICATION
     Dosage: 40 MILLIGRAM
     Route: 048
     Dates: start: 20110216, end: 20120711
  25. ZOMETA [Concomitant]
     Indication: PRODUCT USED FOR UNKNOWN INDICATION
     Dosage: 4 MILLIGRAM
     Route: 041
     Dates: start: 20110126
  26. DALTEPARIN [Concomitant]
     Indication: DEEP VEIN THROMBOSIS
     Dosage: 18,000 UNITS
     Route: 058
     Dates: start: 20111028
  27. FILGRASTIM [Concomitant]
     Indication: NEUTROPENIA
     Dosage: 480 MICROGRAM
     Route: 058
     Dates: start: 20111102, end: 20111102
  28. FRAGMIN [Concomitant]
     Indication: THROMBOSIS PROPHYLAXIS
     Dosage: 15,000 UNITS
     Route: 058
     Dates: start: 20111030, end: 20111107
  29. CIPROFLOXACIN [Concomitant]
     Indication: ANTIBIOTIC PROPHYLAXIS
     Dosage: 500 MILLIGRAM
     Route: 048
     Dates: start: 20110216, end: 20110315
  30. PROCHLORPERAZINE [Concomitant]
     Indication: NAUSEA
     Route: 048
     Dates: start: 20110410, end: 20110410
  31. PROCHLORPERAZINE [Concomitant]
     Indication: VOMITING
  32. VITAMIN B6 [Concomitant]
     Indication: PARAESTHESIA
     Dosage: 300 MILLIGRAM
     Route: 048
     Dates: start: 20120905

REACTIONS (3)
  - Basal cell carcinoma [Recovered/Resolved]
  - Deep vein thrombosis [Recovered/Resolved]
  - Basal cell carcinoma [Recovered/Resolved]
